FAERS Safety Report 6114716-2 (Version None)
Quarter: 2009Q1

REPORT INFORMATION
  Report Type: 
  Country: None (occurrence: None)
  Receive Date: 20090313
  Receipt Date: 20090304
  Transmission Date: 20090719
  Serious: Yes (Hospitalization)
  Sender: FDA-Public Use
  Company Number: PHHY2009FR08737

PATIENT
  Sex: Male

DRUGS (4)
  1. ZOMETA [Suspect]
     Indication: METASTASES TO BONE
     Dosage: UNK
     Dates: start: 20060101
  2. TAHOR [Concomitant]
  3. ASPEGIC 325 [Concomitant]
  4. PLAVIX [Concomitant]

REACTIONS (2)
  - OSTEITIS [None]
  - OSTEONECROSIS [None]
